FAERS Safety Report 4665491-X (Version None)
Quarter: 2005Q2

REPORT INFORMATION
  Report Type: 
  Country: None (occurrence: None)
  Receive Date: 20050519
  Receipt Date: 20041124
  Transmission Date: 20051028
  Serious: Yes (Other)
  Sender: FDA-Public Use
  Company Number: US-BRISTOL-MYERS SQUIBB COMPANY-12777132

PATIENT
  Age: 42 Year
  Sex: Female

DRUGS (1)
  1. CYTOXAN [Suspect]
     Indication: BREAST CANCER

REACTIONS (1)
  - FULL BLOOD COUNT ABNORMAL [None]
